FAERS Safety Report 7382653-1 (Version None)
Quarter: 2011Q1

REPORT INFORMATION
  Report Type: 
  Country: None (occurrence: None)
  Receive Date: 20110329
  Receipt Date: 20110322
  Transmission Date: 20110831
  Serious: No
  Sender: FDA-Public Use
  Company Number: US-BAYER-2011-026660

PATIENT
  Sex: Female
  Weight: 88 kg

DRUGS (8)
  1. UNCODEABLE ^UNCLASSIFIABLE^ [Concomitant]
  2. LOVASTATIN [Concomitant]
  3. COLACE [Concomitant]
  4. FLUOXETINE HCL [Concomitant]
  5. CENTRUM SILVER [Concomitant]
  6. FUROSEMIDE [Concomitant]
  7. ALEVE (CAPLET) [Suspect]
     Indication: BACK PAIN
     Dosage: 1 DF, QD WITH FOOD
     Route: 048
     Dates: start: 20110201, end: 20110318
  8. LEVOTHYROXINE SODIUM [Concomitant]

REACTIONS (2)
  - CONSTIPATION [None]
  - NO ADVERSE EVENT [None]
